FAERS Safety Report 22865871 (Version 2)
Quarter: 2025Q2

REPORT INFORMATION
  Report Type: Spontaneous
  Country: CA (occurrence: CA)
  Receive Date: 20230825
  Receipt Date: 20250429
  Transmission Date: 20250717
  Serious: Yes (Other)
  Sender: AUROBINDO
  Company Number: CA-AUROBINDO-AUR-APL-2023-054753

PATIENT
  Age: 17 Year
  Sex: Male

DRUGS (3)
  1. LOSARTAN [Suspect]
     Active Substance: LOSARTAN
     Indication: Stiff skin syndrome
     Dosage: 0.7 MILLIGRAM/KILOGRAM, ONCE A DAY
     Route: 048
  2. LOSARTAN [Suspect]
     Active Substance: LOSARTAN
     Dosage: 100 MILLIGRAM, ONCE A DAY
     Route: 065
  3. SECUKINUMAB [Concomitant]
     Active Substance: SECUKINUMAB
     Indication: Stiff skin syndrome
     Route: 058

REACTIONS (3)
  - Disease progression [Unknown]
  - Stiff skin syndrome [Unknown]
  - Product use in unapproved indication [Unknown]
